FAERS Safety Report 23440169 (Version 1)
Quarter: 2024Q1

REPORT INFORMATION
  Report Type: Report from Study
  Country: GB (occurrence: GB)
  Receive Date: 20240124
  Receipt Date: 20240124
  Transmission Date: 20240410
  Serious: Yes (Hospitalization)
  Sender: FDA-Public Use
  Company Number: GB-ABBVIE-5594432

PATIENT
  Age: 30 Year
  Sex: Female
  Weight: 59 kg

DRUGS (17)
  1. HUMIRA [Suspect]
     Active Substance: ADALIMUMAB
     Indication: Colitis ulcerative
     Dosage: 1 IN 4 WEEKLY INJECTIONS
     Route: 058
     Dates: start: 20180423, end: 20181105
  2. RIFAMPIN [Concomitant]
     Active Substance: RIFAMPIN
     Indication: Postoperative care
     Route: 048
     Dates: start: 20210929
  3. BUTYLSCOPOLAMINE BROMIDE [Concomitant]
     Active Substance: BUTYLSCOPOLAMINE BROMIDE
     Indication: Colitis ulcerative
     Dosage: TIME INTERVAL: AS NECESSARY
     Route: 048
     Dates: start: 20160216
  4. SALOFALK [Concomitant]
     Indication: Colitis ulcerative
     Route: 054
     Dates: start: 20211220
  5. FERROUS FUMARATE [Concomitant]
     Active Substance: FERROUS FUMARATE
     Indication: Mineral supplementation
     Dosage: TIME INTERVAL: 0.33333333 DAYS
     Route: 048
     Dates: start: 20220113
  6. ADAPALENE [Concomitant]
     Active Substance: ADAPALENE
     Indication: Acne
     Route: 061
     Dates: start: 20171130
  7. VEDOLIZUMAB [Concomitant]
     Active Substance: VEDOLIZUMAB
     Indication: Colitis ulcerative
     Route: 041
     Dates: start: 20190226
  8. CHOLECALCIFEROL [Concomitant]
     Active Substance: CHOLECALCIFEROL
     Indication: Colitis ulcerative
     Route: 048
     Dates: start: 20190117
  9. SERTRALINE [Concomitant]
     Active Substance: SERTRALINE HYDROCHLORIDE
     Indication: Depression
     Dosage: 100MG
     Route: 048
     Dates: start: 20190122
  10. ENOXAPARIN [Concomitant]
     Active Substance: ENOXAPARIN
     Indication: Thrombosis prophylaxis
     Route: 058
     Dates: start: 20210906, end: 20211003
  11. ENOXAPARIN [Concomitant]
     Active Substance: ENOXAPARIN
     Indication: Thrombosis prophylaxis
     Route: 058
     Dates: start: 20211004
  12. AZATHIOPRINE [Suspect]
     Active Substance: AZATHIOPRINE
     Indication: Colitis ulcerative
     Route: 048
     Dates: start: 20160327, end: 20160402
  13. AZATHIOPRINE [Suspect]
     Active Substance: AZATHIOPRINE
     Indication: Colitis ulcerative
     Route: 048
     Dates: start: 20160403, end: 20160410
  14. AZATHIOPRINE [Suspect]
     Active Substance: AZATHIOPRINE
     Indication: Colitis ulcerative
     Route: 048
     Dates: start: 20160411, end: 20210929
  15. ACETAMINOPHEN [Concomitant]
     Active Substance: ACETAMINOPHEN
     Indication: Perioperative analgesia
     Dosage: FREQUENCY ONCE ONLY
     Route: 041
     Dates: start: 20210929, end: 20210929
  16. ACETAMINOPHEN [Concomitant]
     Active Substance: ACETAMINOPHEN
     Indication: Perioperative analgesia
     Route: 048
     Dates: start: 20210929
  17. CYCLIZINE [Concomitant]
     Active Substance: CYCLIZINE
     Indication: Antiemetic supportive care
     Dosage: TIME INTERVAL: AS NECESSARY
     Route: 048
     Dates: start: 20210930

REACTIONS (1)
  - Stoma prolapse [Recovered/Resolved]

NARRATIVE: CASE EVENT DATE: 20230504
